FAERS Safety Report 4643121-0 (Version None)
Quarter: 2005Q2

REPORT INFORMATION
  Report Type: 
  Country: None (occurrence: None)
  Receive Date: 20050422
  Receipt Date: 20050217
  Transmission Date: 20051028
  Serious: Yes (Hospitalization, Other)
  Sender: FDA-Public Use
  Company Number: 2005034768

PATIENT
  Age: 50 Year
  Sex: Male
  Weight: 63.5036 kg

DRUGS (3)
  1. CELEBREX [Suspect]
     Indication: ARTHRITIS
     Dosage: 200 MG (200 MG, 1 IN 1 D), ORAL
     Route: 048
     Dates: start: 20040101
  2. NAPROXEN SODIUM [Concomitant]
  3. ACETAMINOPHEN [Concomitant]

REACTIONS (6)
  - CARDIAC DISORDER [None]
  - CARDIOMEGALY [None]
  - EFFUSION [None]
  - MYOCARDIAL INFARCTION [None]
  - OEDEMA [None]
  - SCAR [None]
